FAERS Safety Report 21180088 (Version 1)
Quarter: 2022Q3

REPORT INFORMATION
  Report Type: Spontaneous
  Country: US (occurrence: None)
  Receive Date: 20220805
  Receipt Date: 20220805
  Transmission Date: 20221027
  Serious: Yes (Other)
  Sender: FDA-Public Use
  Company Number: None

PATIENT
  Sex: Female

DRUGS (2)
  1. OVIDREL [Suspect]
     Active Substance: CHORIOGONADOTROPIN ALFA
     Indication: Infertility female
     Dosage: OTHER STRENGTH : 250/0.5 UG/ML;?OTHER QUANTITY : 250/0.5 UG/ML;?
     Route: 058
     Dates: start: 20181208
  2. FOLLISTIM AQ [Concomitant]

REACTIONS (2)
  - Abortion spontaneous [None]
  - Depression [None]
